FAERS Safety Report 11135693 (Version 1)
Quarter: 2015Q2

REPORT INFORMATION
  Report Type: Spontaneous
  Country: US (occurrence: None)
  Receive Date: 20150522
  Receipt Date: 20150522
  Transmission Date: 20150821
  Serious: No
  Sender: FDA-Public Use
  Company Number: None

PATIENT
  Age: 52 Year
  Sex: Female

DRUGS (1)
  1. HUMIRA [Suspect]
     Active Substance: ADALIMUMAB
     Indication: CROHN^S DISEASE
     Route: 048
     Dates: start: 20150305

REACTIONS (5)
  - Gastrointestinal infection [None]
  - Dehydration [None]
  - Haematochezia [None]
  - Inflammatory marker increased [None]
  - Urinary tract infection [None]

NARRATIVE: CASE EVENT DATE: 20150506
